FAERS Safety Report 5945449-0 (Version None)
Quarter: 2008Q4

REPORT INFORMATION
  Report Type: 
  Country: None (occurrence: None)
  Receive Date: 20081107
  Receipt Date: 20081030
  Transmission Date: 20090506
  Serious: Yes (Hospitalization, Other)
  Sender: FDA-Public Use
  Company Number: IE-PFIZER INC-2008088384

PATIENT
  Sex: Male
  Weight: 74 kg

DRUGS (3)
  1. LIPITOR [Suspect]
     Route: 048
     Dates: start: 20060328, end: 20080807
  2. MEMANTINE HCL [Concomitant]
     Indication: DEMENTIA
     Route: 048
     Dates: start: 20070101, end: 20080801
  3. ARICEPT [Concomitant]
     Dosage: DAILY DOSE:10MG
     Route: 048
     Dates: start: 20040101

REACTIONS (8)
  - ANOREXIA [None]
  - ASPARTATE AMINOTRANSFERASE INCREASED [None]
  - BLOOD BILIRUBIN INCREASED [None]
  - BLOOD LACTATE DEHYDROGENASE INCREASED [None]
  - GAMMA-GLUTAMYLTRANSFERASE INCREASED [None]
  - MALAISE [None]
  - NAUSEA [None]
  - WEIGHT DECREASED [None]
